FAERS Safety Report 4748143-7 (Version None)
Quarter: 2005Q3

REPORT INFORMATION
  Report Type: 
  Country: None (occurrence: None)
  Receive Date: 20050818
  Receipt Date: 20031106
  Transmission Date: 20060218
  Serious: Yes (Hospitalization)
  Sender: FDA-Public Use
  Company Number: 2003AP03993

PATIENT
  Age: 14767 Day
  Sex: Male

DRUGS (3)
  1. ZOMIG [Suspect]
     Indication: MIGRAINE
     Dosage: 6 TABLETS TAKEN
     Route: 048
     Dates: start: 20020805, end: 20020809
  2. DEPAS [Concomitant]
     Route: 048
     Dates: start: 20020805, end: 20020809
  3. TERNELIN [Concomitant]
     Route: 048
     Dates: start: 20020805, end: 20020809

REACTIONS (4)
  - CEREBROVASCULAR INSUFFICIENCY [None]
  - CSF CELL COUNT INCREASED [None]
  - DISORIENTATION [None]
  - MEMORY IMPAIRMENT [None]
